FAERS Safety Report 4521947-1 (Version None)
Quarter: 2004Q4

REPORT INFORMATION
  Report Type: 
  Country: None (occurrence: None)
  Receive Date: 20041207
  Receipt Date: 20041207
  Transmission Date: 20050328
  Serious: Yes (Life-Threatening, Hospitalization)
  Sender: FDA-Public Use
  Company Number: None

PATIENT
  Age: 94 Year
  Sex: Female
  Weight: 46.7205 kg

DRUGS (11)
  1. PHENYTOIN [Suspect]
     Indication: EPILEPSY
     Dosage: 6 ML BY MOUTH TWICE/DAY
     Route: 048
  2. COUMADIN [Concomitant]
  3. METOPROLOL [Concomitant]
  4. LANOXIN [Concomitant]
  5. PREVACID [Concomitant]
  6. TORSEMIDE [Concomitant]
  7. SPIRONOLACTONE [Concomitant]
  8. MICRO-K [Concomitant]
  9. DOCUSATE SODIUM [Concomitant]
  10. VITAMIN D [Concomitant]
  11. OYSTER SHELL CALCIUM [Concomitant]

REACTIONS (5)
  - ANTICONVULSANT DRUG LEVEL BELOW THERAPEUTIC [None]
  - CONVULSION [None]
  - DRUG EFFECT DECREASED [None]
  - LOSS OF CONSCIOUSNESS [None]
  - PHARMACEUTICAL PRODUCT COMPLAINT [None]
